FAERS Safety Report 7894455-8 (Version None)
Quarter: 2011Q4

REPORT INFORMATION
  Report Type: 
  Country: None (occurrence: None)
  Receive Date: 20111105
  Receipt Date: 20111026
  Transmission Date: 20120403
  Serious: Yes (Other)
  Sender: FDA-Public Use
  Company Number: NL-ASTRAZENECA-2011SE65927

PATIENT
  Sex: Female

DRUGS (1)
  1. BUDESONIDE [Suspect]
     Route: 048
     Dates: start: 20110501

REACTIONS (3)
  - SYNCOPE [None]
  - HEAD DISCOMFORT [None]
  - DIZZINESS [None]
